FAERS Safety Report 7274355-7 (Version None)
Quarter: 2011Q1

REPORT INFORMATION
  Report Type: 
  Country: None (occurrence: None)
  Receive Date: 20110131
  Receipt Date: 20110131
  Transmission Date: 20110831
  Serious: Yes (Hospitalization)
  Sender: FDA-Public Use
  Company Number: None

PATIENT
  Age: 7 Year
  Sex: Male
  Weight: 16.4 kg

DRUGS (1)
  1. ISONIAZID [Suspect]
     Indication: TUBERCULOSIS
     Dosage: INH 150 MG PO DAILY X 9 MONTHS
     Route: 048
     Dates: start: 20101116, end: 20110118

REACTIONS (3)
  - SENSATION OF HEAVINESS [None]
  - FATIGUE [None]
  - ALANINE AMINOTRANSFERASE INCREASED [None]
